FAERS Safety Report 8835113 (Version 2)
Quarter: 2012Q4

REPORT INFORMATION
  Report Type: Report from Study
  Country: JP (occurrence: JP)
  Receive Date: 20121011
  Receipt Date: 20121122
  Transmission Date: 20130627
  Serious: Yes (Death)
  Sender: FDA-Public Use
  Company Number: JP-BRISTOL-MYERS SQUIBB COMPANY-17018169

PATIENT
  Age: 29 Year
  Sex: Female
  Weight: 53.6 kg

DRUGS (5)
  1. BRIPLATIN [Suspect]
     Indication: BONE SARCOMA
     Dosage: 187 mg/body 
195mm
23aug12: 187mg
     Route: 041
     Dates: start: 20120717
  2. ADRIAMYCIN [Suspect]
     Indication: BONE SARCOMA
     Dosage: 46 mg/body 
23Aug12: 46mg
     Route: 041
     Dates: start: 20120717, end: 20120825
  3. GRAN [Suspect]
     Indication: FEBRILE NEUTROPENIA
     Dosage: 225 mg/body 
Formulation:inj
Syringe
     Route: 042
     Dates: start: 20120831, end: 20120901
  4. GRAN [Suspect]
     Indication: BONE SARCOMA
     Dosage: 225 mg/body 
Formulation:inj
Syringe
     Route: 042
     Dates: start: 20120831, end: 20120901
  5. METHOTREXATE [Suspect]
     Dosage: Received high dose of methotrexate 
10g/m2
on 14aug12: 15.9g
     Dates: start: 20120807

REACTIONS (3)
  - Sepsis [Fatal]
  - Pulmonary embolism [Fatal]
  - Shock [Fatal]
